FAERS Safety Report 9696811 (Version 1)
Quarter: 2013Q4

REPORT INFORMATION
  Report Type: Spontaneous
  Country: DK (occurrence: DK)
  Receive Date: 20131119
  Receipt Date: 20131119
  Transmission Date: 20140711
  Serious: Yes (Life-Threatening, Hospitalization)
  Sender: FDA-Public Use
  Company Number: PHHY2013DK130477

PATIENT
  Age: 64 Year
  Sex: Female

DRUGS (5)
  1. SPARKAL [Suspect]
     Indication: HYPERTENSION
     Dosage: 1 DF, QD
     Route: 048
     Dates: start: 2011
  2. SOTALOL [Interacting]
     Indication: HYPERTENSION
     Dosage: 1 TABLET IN THE MORNING AND HALF TABLET IN THE EVENING
     Route: 048
     Dates: start: 1983, end: 20131024
  3. SIMVASTATIN [Concomitant]
     Indication: HYPERCHOLESTEROLAEMIA
     Dates: start: 2011
  4. QUININE [Concomitant]
     Indication: MUSCLE SPASMS
     Dates: start: 201211
  5. LOSARTAN [Concomitant]
     Indication: HYPERTENSION
     Dates: start: 2012

REACTIONS (3)
  - Electrocardiogram QT prolonged [Not Recovered/Not Resolved]
  - Syncope [Recovered/Resolved]
  - Drug interaction [Unknown]
